FAERS Safety Report 5126554-8 (Version None)
Quarter: 2006Q4

REPORT INFORMATION
  Report Type: 
  Country: None (occurrence: None)
  Receive Date: 20061011
  Receipt Date: 20061011
  Transmission Date: 20070319
  Serious: No
  Sender: FDA-Public Use
  Company Number: None

PATIENT
  Age: 45 Year
  Sex: Male
  Weight: 102.0593 kg

DRUGS (2)
  1. PREDNISONE TAB [Suspect]
     Dates: start: 20000110, end: 20000224
  2. PREDNISONE TAB [Suspect]
     Dates: start: 20000110, end: 20000224

REACTIONS (1)
  - CHRONIC FATIGUE SYNDROME [None]
